FAERS Safety Report 5093064-6 (Version None)
Quarter: 2006Q3

REPORT INFORMATION
  Report Type: 
  Country: None (occurrence: None)
  Receive Date: 20060830
  Receipt Date: 20060822
  Transmission Date: 20061208
  Serious: Yes (Other)
  Sender: FDA-Public Use
  Company Number: US-SANOFI-SYNTHELABO-A03200605340

PATIENT
  Age: 76 Year
  Sex: Female
  Weight: 45.4 kg

DRUGS (5)
  1. ELOXATIN [Suspect]
     Indication: COLON CANCER METASTATIC
     Route: 042
     Dates: start: 20060802, end: 20060802
  2. PROPRANOLOL [Concomitant]
     Dosage: UNK
     Route: 048
  3. HYDROCHLOROTHIAZIDE [Concomitant]
     Dosage: UNK
     Route: 048
  4. LEUCOVORIN CALCIUM [Suspect]
     Dosage: UNK
     Route: 042
     Dates: start: 20060802, end: 20060802
  5. FLUOROURACIL [Suspect]
     Dosage: UNK
     Route: 042
     Dates: start: 20060802, end: 20060802

REACTIONS (3)
  - COUGH [None]
  - LARYNGITIS [None]
  - LARYNGOSPASM [None]
